FAERS Safety Report 8125078-3 (Version None)
Quarter: 2012Q1

REPORT INFORMATION
  Report Type: 
  Country: None (occurrence: None)
  Receive Date: 20120209
  Receipt Date: 20120131
  Transmission Date: 20120608
  Serious: Yes (Hospitalization)
  Sender: FDA-Public Use
  Company Number: JP-ROCHE-1020536

PATIENT
  Sex: Female
  Weight: 55 kg

DRUGS (9)
  1. FLUOROURACIL [Concomitant]
     Route: 041
     Dates: start: 20100527
  2. FLUOROURACIL [Concomitant]
     Indication: COLON CANCER METASTATIC
     Dosage: DOSAGE IS UNCERTAIN.
     Route: 040
     Dates: start: 20100527
  3. EMEND [Concomitant]
     Route: 048
  4. AVASTIN [Suspect]
     Indication: COLON CANCER METASTATIC
     Route: 041
     Dates: start: 20100603, end: 20101029
  5. ALOXI [Concomitant]
     Dosage: DOSAGE IS UNCERTAIN.
     Route: 042
  6. AVASTIN [Suspect]
     Route: 041
     Dates: start: 20101207
  7. LEVOLEUCOVORIN CALCIUM [Concomitant]
     Indication: COLON CANCER METASTATIC
     Route: 041
     Dates: start: 20100527
  8. OXALIPLATIN [Concomitant]
     Indication: COLON CANCER METASTATIC
     Route: 041
     Dates: start: 20100527
  9. RHYTHMY [Concomitant]
     Route: 048

REACTIONS (1)
  - SUPRAVENTRICULAR TACHYCARDIA [None]
